FAERS Safety Report 11826310 (Version 1)
Quarter: 2015Q4

REPORT INFORMATION
  Report Type: Spontaneous
  Country: US (occurrence: US)
  Receive Date: 20151211
  Receipt Date: 20151211
  Transmission Date: 20160305
  Serious: No
  Sender: FDA-Public Use
  Company Number: US-BAYER-2015-479848

PATIENT
  Age: 40 Year
  Sex: Female

DRUGS (2)
  1. TEGRETOL [Interacting]
     Active Substance: CARBAMAZEPINE
  2. MIRENA [Suspect]
     Active Substance: LEVONORGESTREL
     Indication: CONTRACEPTION
     Dosage: 20 MCG/24HR, CONT
     Route: 015
     Dates: start: 20151130

REACTIONS (1)
  - Labelled drug-drug interaction medication error [None]

NARRATIVE: CASE EVENT DATE: 20151130
